FAERS Safety Report 4929454-9 (Version None)
Quarter: 2006Q1

REPORT INFORMATION
  Report Type: 
  Country: None (occurrence: None)
  Receive Date: 20060224
  Receipt Date: 20060213
  Transmission Date: 20060701
  Serious: Yes (Hospitalization)
  Sender: FDA-Public Use
  Company Number: 2006022178

PATIENT
  Age: 49 Year
  Sex: Female

DRUGS (1)
  1. ARTHROTEC [Suspect]
     Indication: INFLAMMATION
     Dosage: 400MCG/100MG (2 IN 1 D)

REACTIONS (1)
  - ANGINA PECTORIS [None]
